FAERS Safety Report 6205302-4 (Version None)
Quarter: 2009Q2

REPORT INFORMATION
  Report Type: 
  Country: None (occurrence: None)
  Receive Date: 20090527
  Receipt Date: 20090309
  Transmission Date: 20091009
  Serious: No
  Sender: FDA-Public Use
  Company Number: US-ABBOTT-09P-163-0561773-00

PATIENT
  Sex: Female

DRUGS (3)
  1. SIMCOR [Suspect]
     Indication: BLOOD CHOLESTEROL INCREASED
     Dosage: 500MG/20MG DAILY
     Dates: start: 20090216, end: 20090307
  2. THYROID TAB [Concomitant]
     Indication: HYPOTHYROIDISM
  3. HORMONE SUPPLEMENTS [Concomitant]
     Indication: HORMONE THERAPY

REACTIONS (2)
  - FLUSHING [None]
  - HEADACHE [None]
